FAERS Safety Report 4711117-6 (Version None)
Quarter: 2005Q3

REPORT INFORMATION
  Report Type: 
  Country: None (occurrence: None)
  Receive Date: 20050708
  Receipt Date: 20050623
  Transmission Date: 20060218
  Serious: Yes (Hospitalization)
  Sender: FDA-Public Use
  Company Number: 2005-0008437

PATIENT
  Age: 41 Year
  Sex: Male

DRUGS (3)
  1. VIREAD [Suspect]
     Dates: start: 20021201
  2. DIDANOSINE [Concomitant]
  3. NEVIRAPINE [Concomitant]

REACTIONS (15)
  - AMINOACIDURIA [None]
  - BLOOD LACTIC ACID INCREASED [None]
  - BLOOD SODIUM INCREASED [None]
  - DIABETES INSIPIDUS [None]
  - FANCONI SYNDROME [None]
  - GLYCOSURIA [None]
  - HYPERPHOSPHATURIA [None]
  - HYPERURICAEMIA [None]
  - HYPOCALCAEMIA [None]
  - HYPOKALAEMIA [None]
  - HYPOPHOSPHATAEMIA [None]
  - HYPOVOLAEMIC SHOCK [None]
  - METABOLIC ACIDOSIS [None]
  - PROTEINURIA [None]
  - RENAL FAILURE ACUTE [None]
